FAERS Safety Report 10440464 (Version 1)
Quarter: 2014Q3

REPORT INFORMATION
  Report Type: Spontaneous
  Country: US (occurrence: US)
  Receive Date: 20140909
  Receipt Date: 20140909
  Transmission Date: 20150326
  Serious: Yes (Death, Other)
  Sender: FDA-Public Use
  Company Number: US-BIOGENIDEC-2014BI091406

PATIENT
  Age: 53 Year
  Sex: Female

DRUGS (1)
  1. AVONEX [Suspect]
     Active Substance: INTERFERON BETA-1A
     Indication: MULTIPLE SCLEROSIS
     Route: 030
     Dates: start: 20030610

REACTIONS (11)
  - Intestinal mass [Unknown]
  - Tremor [Not Recovered/Not Resolved]
  - Colon cancer [Not Recovered/Not Resolved]
  - Stress [Unknown]
  - Arthralgia [Recovered/Resolved]
  - Diabetes mellitus [Unknown]
  - Pneumonia [Not Recovered/Not Resolved]
  - Muscle strain [Unknown]
  - Infection [Unknown]
  - Cardiac failure congestive [Fatal]
  - Hypersensitivity [Recovered/Resolved]

NARRATIVE: CASE EVENT DATE: 2014
